FAERS Safety Report 4838324-6 (Version None)
Quarter: 2005Q4

REPORT INFORMATION
  Report Type: 
  Country: None (occurrence: None)
  Receive Date: 20051128
  Receipt Date: 20051115
  Transmission Date: 20060501
  Serious: Yes (Other)
  Sender: FDA-Public Use
  Company Number: PHBS2005SE16799

PATIENT
  Age: 60 Year
  Sex: Male

DRUGS (7)
  1. ZOMETA [Suspect]
     Indication: METASTASES TO BONE
     Dosage: 4 MG, QMO
     Route: 065
     Dates: start: 20030401, end: 20050101
  2. ESTRADURIN [Concomitant]
  3. DOLCONTIN [Concomitant]
  4. VOLTAREN [Concomitant]
  5. BETAPRED [Concomitant]
  6. NEURONTIN [Concomitant]
  7. CALCICHEW [Concomitant]

REACTIONS (2)
  - BONE DISORDER [None]
  - OSTEONECROSIS [None]
